FAERS Safety Report 10701875 (Version 5)
Quarter: 2016Q3

REPORT INFORMATION
  Report Type: Spontaneous
  Country: US (occurrence: US)
  Receive Date: 20150109
  Receipt Date: 20160808
  Transmission Date: 20161109
  Serious: Yes (Disabling, Other)
  Sender: FDA-Public Use
  Company Number: US-GLAXOSMITHKLINE-A1086167A

PATIENT
  Sex: Female

DRUGS (3)
  1. BACTROBAN [Suspect]
     Active Substance: MUPIROCIN\MUPIROCIN CALCIUM
     Indication: NASAL DRYNESS
  2. BACTROBAN [Suspect]
     Active Substance: MUPIROCIN\MUPIROCIN CALCIUM
     Indication: EPISTAXIS
     Dosage: UNK, U
     Dates: start: 20100804
  3. BACTROBAN [Suspect]
     Active Substance: MUPIROCIN\MUPIROCIN CALCIUM
     Indication: EPISTAXIS
     Dosage: UNK, U
     Route: 065
     Dates: start: 20100825

REACTIONS (10)
  - Haemorrhage [Unknown]
  - Epistaxis [Unknown]
  - Prescribed overdose [Unknown]
  - Accident at work [Unknown]
  - Drug dose omission [Unknown]
  - Malaise [Unknown]
  - Disability [Not Recovered/Not Resolved]
  - Product supply issue [Unknown]
  - Off label use [Not Recovered/Not Resolved]
  - Fatigue [Unknown]
